FAERS Safety Report 23857915 (Version 1)
Quarter: 2024Q2

REPORT INFORMATION
  Report Type: Spontaneous
  Country: US (occurrence: None)
  Receive Date: 20240514
  Receipt Date: 20240514
  Transmission Date: 20240716
  Serious: Yes (Hospitalization)
  Sender: FDA-Public Use
  Company Number: None

PATIENT
  Sex: Female

DRUGS (1)
  1. EMPAGLIFLOZIN [Suspect]
     Active Substance: EMPAGLIFLOZIN
     Indication: Diabetes mellitus
     Dosage: OTHER FREQUENCY : AM;?
     Dates: start: 20231115, end: 20240228

REACTIONS (3)
  - Acidosis [None]
  - Urinary tract infection [None]
  - Escherichia infection [None]

NARRATIVE: CASE EVENT DATE: 20240220
